FAERS Safety Report 15234678 (Version 4)
Quarter: 2019Q1

REPORT INFORMATION
  Report Type: Report from Study
  Country: JP (occurrence: JP)
  Receive Date: 20180803
  Receipt Date: 20190222
  Transmission Date: 20190417
  Serious: Yes (Other)
  Sender: FDA-Public Use
  Company Number: JP-ALEXION-A201804483

PATIENT

DRUGS (9)
  1. SOLIRIS [Suspect]
     Active Substance: ECULIZUMAB
     Indication: PAROXYSMAL NOCTURNAL HAEMOGLOBINURIA
     Dosage: 600 MG, QW
     Route: 042
     Dates: start: 20130710, end: 20130731
  2. EXJADE [Concomitant]
     Active Substance: DEFERASIROX
     Indication: PAROXYSMAL NOCTURNAL HAEMOGLOBINURIA
     Dosage: 125 MG, DAILY
     Route: 065
     Dates: start: 20171023
  3. FEBURIC [Concomitant]
     Active Substance: FEBUXOSTAT
     Indication: PAROXYSMAL NOCTURNAL HAEMOGLOBINURIA
     Dosage: 10 MG, DAILY
     Route: 065
     Dates: start: 20170427, end: 20170517
  4. EXJADE [Concomitant]
     Active Substance: DEFERASIROX
     Dosage: 250 MG, UNK
     Route: 065
     Dates: start: 20171102
  5. EXJADE [Concomitant]
     Active Substance: DEFERASIROX
     Dosage: 500 MG, DAILY
     Route: 065
     Dates: start: 20171221
  6. EXJADE [Concomitant]
     Active Substance: DEFERASIROX
     Dosage: 375 MG, UNK
     Route: 065
     Dates: start: 20171122
  7. METHYCOBAL [Concomitant]
     Active Substance: METHYLCOBALAMIN
     Indication: PRODUCT USED FOR UNKNOWN INDICATION
     Dosage: 1500 ?G, DAILY
     Route: 065
     Dates: start: 20140210, end: 20170319
  8. SOLIRIS [Suspect]
     Active Substance: ECULIZUMAB
     Dosage: 900 MG, UNK
     Route: 042
     Dates: start: 20130807
  9. FOLIAMIN [Concomitant]
     Active Substance: FOLIC ACID
     Indication: PAROXYSMAL NOCTURNAL HAEMOGLOBINURIA
     Dosage: 20 MG, DAILY
     Route: 065
     Dates: start: 20170118

REACTIONS (8)
  - Upper respiratory tract inflammation [Recovered/Resolved]
  - Bronchitis [Recovered/Resolved]
  - Bronchitis [Recovered/Resolved]
  - Extravascular haemolysis [Recovered/Resolved]
  - Chronic sinusitis [Recovered/Resolved]
  - Infection [Recovered/Resolved]
  - Drug ineffective [Unknown]
  - Condition aggravated [Recovered/Resolved]

NARRATIVE: CASE EVENT DATE: 20170425
